FAERS Safety Report 7021075-X (Version None)
Quarter: 2010Q3

REPORT INFORMATION
  Report Type: 
  Country: None (occurrence: None)
  Receive Date: 20100929
  Receipt Date: 20100916
  Transmission Date: 20110219
  Serious: Yes (Other)
  Sender: FDA-Public Use
  Company Number: US-PFIZER INC-2006125086

PATIENT
  Sex: Female
  Weight: 100.23 kg

DRUGS (5)
  1. DETROL [Suspect]
     Dosage: UNK
  2. LODINE XL [Concomitant]
     Dosage: 40 MG, 2X/DAY
  3. CALCIUM [Concomitant]
     Dosage: UNK
  4. OXYBUTYNIN [Concomitant]
     Dosage: UNK
  5. ACTONEL [Concomitant]
     Dosage: UNK

REACTIONS (13)
  - ABDOMINAL PAIN [None]
  - ABDOMINAL PAIN UPPER [None]
  - ARTHRALGIA [None]
  - BRONCHITIS [None]
  - BURNING SENSATION [None]
  - DRUG INEFFECTIVE [None]
  - DRY MOUTH [None]
  - FRACTURED COCCYX [None]
  - GLAUCOMA [None]
  - HYPERHIDROSIS [None]
  - INTERVERTEBRAL DISC DEGENERATION [None]
  - JOINT INJURY [None]
  - PAIN IN EXTREMITY [None]
